FAERS Safety Report 14843267 (Version 2)
Quarter: 2018Q2

REPORT INFORMATION
  Report Type: Spontaneous
  Country: US (occurrence: US)
  Receive Date: 20180503
  Receipt Date: 20180530
  Transmission Date: 20180711
  Serious: Yes (Hospitalization, Other)
  Sender: FDA-Public Use
  Company Number: US-PFIZER INC-2018174236

PATIENT
  Age: 73 Year
  Sex: Male
  Weight: 111.11 kg

DRUGS (4)
  1. SUTENT [Suspect]
     Active Substance: SUNITINIB MALATE
     Indication: RENAL CELL CARCINOMA
     Dosage: 50 MG, CYCLIC (ONE PER DAY FOR 4 WEEKS THEN 2 WEEKS OFF)
     Route: 048
     Dates: end: 2018
  2. SUTENT [Suspect]
     Active Substance: SUNITINIB MALATE
     Dosage: 20 MG, UNK
     Dates: start: 20180221, end: 20180410
  3. OLMESARTAN MEDOXOMIL. [Concomitant]
     Active Substance: OLMESARTAN MEDOXOMIL
     Indication: BLOOD PRESSURE ABNORMAL
     Dosage: 40 MG, 1X/DAY
     Route: 048
  4. AMIODARONE HCL [Concomitant]
     Active Substance: AMIODARONE HYDROCHLORIDE
     Indication: ATRIAL FIBRILLATION
     Dosage: 200 MG, 2X/DAY
     Route: 048

REACTIONS (9)
  - Skin exfoliation [Unknown]
  - Postoperative wound infection [Not Recovered/Not Resolved]
  - Incision site haemorrhage [Recovered/Resolved]
  - Dysgeusia [Unknown]
  - Cholecystitis infective [Recovered/Resolved]
  - Dry skin [Unknown]
  - Incision site vesicles [Recovered/Resolved]
  - Impaired healing [Recovered/Resolved]
  - Hypertension [Unknown]

NARRATIVE: CASE EVENT DATE: 201804
